FAERS Safety Report 20791882 (Version 2)
Quarter: 2022Q2

REPORT INFORMATION
  Report Type: Report from Study
  Country: US (occurrence: US)
  Receive Date: 20220505
  Receipt Date: 20220519
  Transmission Date: 20220721
  Serious: Yes (Death, Hospitalization)
  Sender: FDA-Public Use
  Company Number: US-TEVA-2022-US-2033101

PATIENT

DRUGS (2)
  1. HYDROXYCHLOROQUINE [Suspect]
     Active Substance: HYDROXYCHLOROQUINE
     Indication: COVID-19
     Dosage: 800 MILLIGRAM DAILY; ON DAY 1; RECEIVED 2 DOSES
     Route: 065
     Dates: start: 202003, end: 202003
  2. HYDROXYCHLOROQUINE [Suspect]
     Active Substance: HYDROXYCHLOROQUINE
     Dosage: 400 MILLIGRAM DAILY; ON DAYS 2 TO 5
     Route: 065
     Dates: start: 202003, end: 202003

REACTIONS (3)
  - Ventricular tachycardia [Fatal]
  - Cardiac arrest [Fatal]
  - Off label use [Fatal]

NARRATIVE: CASE EVENT DATE: 20200301
